FAERS Safety Report 13820615 (Version 2)
Quarter: 2017Q3

REPORT INFORMATION
  Report Type: Spontaneous
  Country: FR (occurrence: FR)
  Receive Date: 20170801
  Receipt Date: 20170907
  Transmission Date: 20171127
  Serious: Yes (Hospitalization)
  Sender: FDA-Public Use
  Company Number: FR-PFIZER INC-2017327405

PATIENT
  Age: 67 Year
  Sex: Male
  Weight: 61 kg

DRUGS (9)
  1. IRINOTECAN HCL [Suspect]
     Active Substance: IRINOTECAN HYDROCHLORIDE
     Indication: COLON CANCER METASTATIC
     Dosage: 280 MG, CYCLIC
     Route: 042
     Dates: start: 20170711, end: 20170711
  2. AVASTIN [Suspect]
     Active Substance: BEVACIZUMAB
     Indication: COLON CANCER METASTATIC
     Dosage: 360 MG, CYCLIC
     Route: 042
     Dates: start: 20170711, end: 20170711
  3. ATROPINE SULFATE AGUETTANT [Concomitant]
     Active Substance: ATROPINE SULFATE
     Dosage: 0.5 MG, SINGLE
     Route: 058
     Dates: start: 20170711, end: 20170711
  4. NEULASTA [Concomitant]
     Active Substance: PEGFILGRASTIM
     Dosage: 6 MG, SINGLE
     Route: 042
     Dates: start: 20170713, end: 20170713
  5. OXALIPLATIN. [Suspect]
     Active Substance: OXALIPLATIN
     Indication: COLON CANCER METASTATIC
     Dosage: 160 MG, CYCLIC
     Route: 042
     Dates: start: 20170711, end: 20170711
  6. FLUOROURACILE ACCORD [Suspect]
     Active Substance: FLUOROURACIL
     Indication: COLON CANCER METASTATIC
     Dosage: 5.14 G, CYCLIC
     Route: 042
     Dates: start: 20170711, end: 20170711
  7. EMEND [Concomitant]
     Active Substance: APREPITANT
     Indication: ANTIEMETIC SUPPORTIVE CARE
     Dosage: 125 MG, 1X/DAY
     Route: 048
     Dates: start: 20170711, end: 20170713
  8. CALCIUM LEVOFOLINATE [Concomitant]
     Active Substance: LEVOLEUCOVORIN CALCIUM
     Dosage: 372 MG, SINGLE
     Route: 042
     Dates: start: 20170711, end: 20170711
  9. METHYLPREDNISOLONE MYLAN [Concomitant]
     Active Substance: METHYLPREDNISOLONE
     Dosage: 60 MG, SINGLE
     Route: 042
     Dates: start: 20170711, end: 20170711

REACTIONS (1)
  - Myocardial infarction [Recovered/Resolved with Sequelae]

NARRATIVE: CASE EVENT DATE: 20170713
